FAERS Safety Report 9041260 (Version 1)
Quarter: 2013Q1

REPORT INFORMATION
  Report Type: Report from Study
  Country: US (occurrence: US)
  Receive Date: 20130129
  Receipt Date: 20130129
  Transmission Date: 20140127
  Serious: No
  Sender: FDA-Public Use
  Company Number: US-ABBOTT-12P-163-0902064-00

PATIENT
  Age: 53 Year
  Sex: Female

DRUGS (7)
  1. HUMIRA 40 MG/0.8 ML PEN [Suspect]
     Indication: RHEUMATOID ARTHRITIS
     Dates: start: 201108, end: 201112
  2. HUMIRA 40 MG/0.8 ML PEN [Suspect]
     Dates: start: 201112
  3. METHOTREXATE [Concomitant]
     Indication: PRODUCT USED FOR UNKNOWN INDICATION
     Dosage: 6 TABLETS EVERY SUNDAY
  4. FOLIC ACID [Concomitant]
     Indication: RHEUMATOID ARTHRITIS
  5. LIPITOR [Concomitant]
     Indication: BLOOD CHOLESTEROL INCREASED
  6. RESTASIS [Concomitant]
     Indication: SJOGREN^S SYNDROME
  7. EVOXAC [Concomitant]
     Indication: SJOGREN^S SYNDROME

REACTIONS (1)
  - Musculoskeletal discomfort [Recovering/Resolving]
